FAERS Safety Report 19129218 (Version 1)
Quarter: 2021Q2

REPORT INFORMATION
  Report Type: Report from Study
  Country: US (occurrence: US)
  Receive Date: 20210413
  Receipt Date: 20210413
  Transmission Date: 20210717
  Serious: Yes (Disabling)
  Sender: FDA-Public Use
  Company Number: US-NOVOPROD-793798

PATIENT
  Sex: Male

DRUGS (2)
  1. OZEMPIC [Suspect]
     Active Substance: SEMAGLUTIDE
     Indication: WEIGHT DECREASED
     Dosage: 0.25 MG
     Route: 058
     Dates: start: 20210305, end: 202103
  2. OZEMPIC [Suspect]
     Active Substance: SEMAGLUTIDE
     Dosage: 0.5 MG
     Route: 058
     Dates: start: 202103

REACTIONS (11)
  - Depressed mood [Unknown]
  - Off label use [Unknown]
  - Anxiety [Unknown]
  - Irritability [Unknown]
  - Somnolence [Not Recovered/Not Resolved]
  - Dysgeusia [Recovered/Resolved]
  - Fatigue [Not Recovered/Not Resolved]
  - Muscular weakness [Not Recovered/Not Resolved]
  - Pain [Unknown]
  - Gastrooesophageal reflux disease [Not Recovered/Not Resolved]
  - Decreased appetite [Not Recovered/Not Resolved]

NARRATIVE: CASE EVENT DATE: 2021
